FAERS Safety Report 4331027-6 (Version None)
Quarter: 2004Q1

REPORT INFORMATION
  Report Type: 
  Country: None (occurrence: None)
  Receive Date: 20040329
  Receipt Date: 20040317
  Transmission Date: 20041129
  Serious: Yes (Death, Hospitalization)
  Sender: FDA-Public Use
  Company Number: B0325995A

PATIENT
  Age: 39 Year
  Sex: Female

DRUGS (6)
  1. CEFAZOLIN [Suspect]
     Dosage: 12.5 GM/ML/ SEE DOSAGE TEXT/INTRATHEC
     Route: 039
  2. PETHIDINE HYDROCHLORIDE [Concomitant]
  3. PROMETHAZINE HCL [Concomitant]
  4. ATRACURIUM BESYLATE [Concomitant]
  5. MIDAZOLAM HCL [Concomitant]
  6. IOHEXOL [Concomitant]

REACTIONS (22)
  - BACK PAIN [None]
  - BASE EXCESS [None]
  - BRAIN OEDEMA [None]
  - CARDIAC ARREST [None]
  - COMA [None]
  - CONDITION AGGRAVATED [None]
  - CONVULSION [None]
  - DISORIENTATION [None]
  - DRUG INTERACTION [None]
  - DYSKINESIA [None]
  - DYSTONIA [None]
  - MEDICATION ERROR [None]
  - MUSCLE TWITCHING [None]
  - MUSCULOSKELETAL STIFFNESS [None]
  - MYDRIASIS [None]
  - POST PROCEDURAL COMPLICATION [None]
  - PULSE ABSENT [None]
  - SALIVARY HYPERSECRETION [None]
  - TACHYCARDIA [None]
  - TREATMENT NONCOMPLIANCE [None]
  - VENTRICULAR TACHYCARDIA [None]
  - VOMITING [None]
